FAERS Safety Report 8606083 (Version 3)
Quarter: 2016Q1

REPORT INFORMATION
  Report Type: Spontaneous
  Country: US (occurrence: US)
  Receive Date: 20120608
  Receipt Date: 20160120
  Transmission Date: 20160526
  Serious: Yes (Hospitalization, Other)
  Sender: FDA-Public Use
  Company Number: US-ASTRAZENECA-2011SE70083

PATIENT
  Age: 72 Year
  Sex: Male
  Weight: 61.2 kg

DRUGS (2)
  1. ATACAND [Suspect]
     Active Substance: CANDESARTAN CILEXETIL
     Route: 048
     Dates: start: 2001
  2. SYMBICORT [Suspect]
     Active Substance: BUDESONIDE\FORMOTEROL FUMARATE DIHYDRATE
     Indication: CHRONIC OBSTRUCTIVE PULMONARY DISEASE
     Dosage: 160/4.5 MCG 1 PUFF TWICE DAILY
     Route: 055

REACTIONS (9)
  - Product contamination physical [Unknown]
  - Dysphonia [Unknown]
  - Aphonia [Unknown]
  - Oropharyngeal pain [Unknown]
  - Body height decreased [Unknown]
  - Device failure [Unknown]
  - Dyspnoea [Unknown]
  - Hip fracture [Unknown]
  - Joint swelling [Unknown]

NARRATIVE: CASE EVENT DATE: 2004
